FAERS Safety Report 12683783 (Version 1)
Quarter: 2016Q3

REPORT INFORMATION
  Report Type: Spontaneous
  Country: US (occurrence: None)
  Receive Date: 20160824
  Receipt Date: 20160824
  Transmission Date: 20161109
  Serious: Yes (Other)
  Sender: FDA-Public Use
  Company Number: None

PATIENT
  Age: 69 Year
  Sex: Female
  Weight: 58.51 kg

DRUGS (5)
  1. XANAX [Concomitant]
     Active Substance: ALPRAZOLAM
  2. FETZIMA [Concomitant]
     Active Substance: LEVOMILNACIPRAN HYDROCHLORIDE
  3. VALACYCLOVIR [Suspect]
     Active Substance: VALACYCLOVIR HYDROCHLORIDE
     Indication: HERPES ZOSTER
     Route: 048
     Dates: start: 20160811, end: 20160813
  4. RITALIN LA [Concomitant]
     Active Substance: METHYLPHENIDATE HYDROCHLORIDE
  5. NORTRIPTYLINE [Concomitant]
     Active Substance: NORTRIPTYLINE

REACTIONS (6)
  - Abdominal pain upper [None]
  - Fatigue [None]
  - Dizziness [None]
  - Nausea [None]
  - Diarrhoea [None]
  - Activities of daily living impaired [None]

NARRATIVE: CASE EVENT DATE: 20160811
